FAERS Safety Report 5020690-2 (Version None)
Quarter: 2006Q2

REPORT INFORMATION
  Report Type: 
  Country: None (occurrence: None)
  Receive Date: 20060602
  Receipt Date: 20060526
  Transmission Date: 20061013
  Serious: Yes (Hospitalization)
  Sender: FDA-Public Use
  Company Number: PERC20060030

PATIENT
  Age: 49 Year
  Sex: Female
  Weight: 76.6579 kg

DRUGS (14)
  1. PERCOCET [Suspect]
     Indication: PROCEDURAL PAIN
     Dosage: PO
     Route: 048
     Dates: start: 20060306, end: 20060308
  2. PERCOCET-5 [Suspect]
     Indication: PROCEDURAL PAIN
     Dosage: 1-2 TABS Q-4-6H PO
     Route: 048
     Dates: start: 20060224, end: 20060101
  3. OXYCONTIN [Suspect]
     Indication: PROCEDURAL PAIN
     Dosage: 40 MG PO
     Route: 048
     Dates: start: 20060225, end: 20060308
  4. DILAUDID [Suspect]
     Indication: PROCEDURAL PAIN
     Dosage: 2 MG PRN IV
     Route: 042
     Dates: start: 20060224
  5. FENTANYL [Concomitant]
  6. NEURONTIN [Concomitant]
  7. PAXIL [Concomitant]
  8. XANAX [Concomitant]
  9. FLEXERIL [Concomitant]
  10. ZELNORM [Concomitant]
  11. SENOKOT [Concomitant]
  12. NIFEREX [Concomitant]
  13. CALCIUM GLUCONATE [Concomitant]
  14. IRON [Concomitant]

REACTIONS (13)
  - ALANINE AMINOTRANSFERASE INCREASED [None]
  - ASPARTATE AMINOTRANSFERASE INCREASED [None]
  - ATELECTASIS [None]
  - BLOOD AMYLASE DECREASED [None]
  - CONDITION AGGRAVATED [None]
  - CONSTIPATION [None]
  - HAEMOGLOBIN DECREASED [None]
  - INTESTINAL OBSTRUCTION [None]
  - IRRITABLE BOWEL SYNDROME [None]
  - PLEURAL EFFUSION [None]
  - POSTOPERATIVE ILEUS [None]
  - SPINAL DISORDER [None]
  - URINE ANALYSIS ABNORMAL [None]
